FAERS Safety Report 23606091 (Version 1)
Quarter: 2024Q1

REPORT INFORMATION
  Report Type: Spontaneous
  Country: CN (occurrence: CN)
  Receive Date: 20240307
  Receipt Date: 20240307
  Transmission Date: 20240409
  Serious: Yes (Hospitalization)
  Sender: FDA-Public Use
  Company Number: CN-PFIZER INC-PV202400030468

PATIENT
  Age: 73 Year
  Sex: Female
  Weight: 42.5 kg

DRUGS (1)
  1. DACOMITINIB [Suspect]
     Active Substance: DACOMITINIB
     Indication: Lung neoplasm malignant
     Dosage: 3 DF(TABLET), 1X/DAY
     Route: 048
     Dates: start: 20230413, end: 20240217

REACTIONS (10)
  - Rash papular [Recovering/Resolving]
  - Scratch [Recovering/Resolving]
  - Pain of skin [Recovering/Resolving]
  - Pruritus [Recovering/Resolving]
  - Eczema [Recovering/Resolving]
  - Skin infection [Recovering/Resolving]
  - Skin exfoliation [Recovering/Resolving]
  - Skin mass [Recovering/Resolving]
  - Skin fissures [Recovering/Resolving]
  - Skin haemorrhage [Recovering/Resolving]

NARRATIVE: CASE EVENT DATE: 20231001
